APPROVED DRUG PRODUCT: LEVONORGESTREL
Active Ingredient: LEVONORGESTREL
Strength: 0.75MG **Federal Register determination that product was not discontinued or withdrawn for safety or effectiveness reasons**
Dosage Form/Route: TABLET;ORAL
Application: A078665 | Product #001
Applicant: FOUNDATION CONSUMER HEALTHCARE LLC
Approved: Aug 28, 2009 | RLD: No | RS: No | Type: DISCN